FAERS Safety Report 8456223-8 (Version None)
Quarter: 2012Q2

REPORT INFORMATION
  Report Type: 
  Country: None (occurrence: None)
  Receive Date: 20120621
  Receipt Date: 20120612
  Transmission Date: 20120825
  Serious: Yes (Hospitalization, Other)
  Sender: FDA-Public Use
  Company Number: CA-ABBOTT-12P-028-0941624-00

PATIENT
  Sex: Male
  Weight: 80 kg

DRUGS (2)
  1. HUMIRA [Suspect]
     Indication: CROHN'S DISEASE
     Route: 058
     Dates: start: 20101208, end: 20120101
  2. IMURAN [Concomitant]
     Indication: PRODUCT USED FOR UNKNOWN INDICATION
     Dates: start: 20101101

REACTIONS (6)
  - GALLBLADDER DISORDER [None]
  - CARDIAC DISORDER [None]
  - TERATOMA [None]
  - GALLBLADDER POLYP [None]
  - CHOLECYSTECTOMY [None]
  - ABDOMINAL PAIN UPPER [None]
